FAERS Safety Report 24889116 (Version 8)
Quarter: 2025Q2

REPORT INFORMATION
  Report Type: Report from Study
  Country: CO (occurrence: CO)
  Receive Date: 20250127
  Receipt Date: 20250411
  Transmission Date: 20250717
  Serious: Yes (Life-Threatening, Hospitalization)
  Sender: NOVARTIS
  Company Number: CO-002147023-NVSC2024CO209694

PATIENT
  Age: 81 Year
  Sex: Male
  Weight: 86 kg

DRUGS (16)
  1. ELTROMBOPAG OLAMINE [Suspect]
     Active Substance: ELTROMBOPAG OLAMINE
     Indication: Immune thrombocytopenia
     Dosage: 150 MG, QD (3 TABLETS (IN TOTAL 150 MG))
     Route: 048
     Dates: start: 20180101, end: 202410
  2. ELTROMBOPAG OLAMINE [Suspect]
     Active Substance: ELTROMBOPAG OLAMINE
     Indication: Bone marrow failure
     Route: 065
     Dates: start: 201801
  3. ELTROMBOPAG OLAMINE [Suspect]
     Active Substance: ELTROMBOPAG OLAMINE
     Dosage: 150 MG, QD
     Route: 048
     Dates: start: 2018
  4. ELTROMBOPAG OLAMINE [Suspect]
     Active Substance: ELTROMBOPAG OLAMINE
     Dosage: 50 MG, QD (1 TABLET (IN TOTAL 50 MG))
     Route: 048
     Dates: start: 202410
  5. ELTROMBOPAG OLAMINE [Suspect]
     Active Substance: ELTROMBOPAG OLAMINE
     Dosage: 50 MG, QD
     Route: 048
     Dates: start: 202412
  6. ELTROMBOPAG OLAMINE [Suspect]
     Active Substance: ELTROMBOPAG OLAMINE
     Dosage: 50 MG, QD
     Route: 048
     Dates: start: 20250310
  7. ELTROMBOPAG OLAMINE [Suspect]
     Active Substance: ELTROMBOPAG OLAMINE
     Dosage: 150 MG, QD (150 MG / 3 OF 50 MG)
     Route: 048
  8. ELTROMBOPAG OLAMINE [Suspect]
     Active Substance: ELTROMBOPAG OLAMINE
     Route: 048
  9. ELTROMBOPAG OLAMINE [Suspect]
     Active Substance: ELTROMBOPAG OLAMINE
     Route: 048
  10. ELTROMBOPAG OLAMINE [Suspect]
     Active Substance: ELTROMBOPAG OLAMINE
     Dosage: 100 MG, QD
     Route: 048
  11. ELTROMBOPAG OLAMINE [Suspect]
     Active Substance: ELTROMBOPAG OLAMINE
     Dosage: 50 MG, Q12H
     Route: 048
  12. ELTROMBOPAG OLAMINE [Suspect]
     Active Substance: ELTROMBOPAG OLAMINE
     Dosage: 50 MG, QD
     Route: 048
  13. ELTROMBOPAG OLAMINE [Suspect]
     Active Substance: ELTROMBOPAG OLAMINE
     Dosage: 50 MG, Q12H
     Route: 048
  14. ELTROMBOPAG OLAMINE [Suspect]
     Active Substance: ELTROMBOPAG OLAMINE
     Dosage: 100 MG, QD (DAILY) (STARTED 10 DAYS AGO)
     Route: 065
  15. ELTROMBOPAG OLAMINE [Suspect]
     Active Substance: ELTROMBOPAG OLAMINE
     Dosage: 100 MG, Q12H
     Route: 065
  16. METFORMIN [Concomitant]
     Active Substance: METFORMIN HYDROCHLORIDE
     Indication: Diabetes mellitus
     Dosage: 2 DOSAGE FORM, QD, TABLET, 8 YEARS
     Route: 065

REACTIONS (18)
  - Platelet count decreased [Recovered/Resolved]
  - Petechiae [Recovered/Resolved]
  - Oral blood blister [Recovered/Resolved]
  - Platelet count decreased [Recovered/Resolved]
  - Haemoglobin decreased [Recovered/Resolved]
  - Spinal fusion acquired [Recovered/Resolved]
  - Oral blood blister [Recovered/Resolved]
  - Petechiae [Recovered/Resolved]
  - Platelet count increased [Unknown]
  - Incorrect dose administered [Recovered/Resolved]
  - Platelet count decreased [Recovering/Resolving]
  - Contusion [Recovered/Resolved]
  - Haematoma [Recovered/Resolved]
  - Weight decreased [Unknown]
  - Immune thrombocytopenia [Recovered/Resolved]
  - Condition aggravated [Recovered/Resolved]
  - Product supply issue [Unknown]
  - Off label use [Unknown]

NARRATIVE: CASE EVENT DATE: 20240911
